FAERS Safety Report 5577500-4 (Version None)
Quarter: 2007Q4

REPORT INFORMATION
  Report Type: 
  Country: None (occurrence: None)
  Receive Date: 20071228
  Receipt Date: 20071218
  Transmission Date: 20080405
  Serious: Yes (Hospitalization, Other)
  Sender: FDA-Public Use
  Company Number: DE-PFIZER INC-2007107359

PATIENT
  Age: 51 Year
  Sex: Male

DRUGS (4)
  1. SORTIS [Suspect]
     Indication: TYPE IIA HYPERLIPIDAEMIA
     Route: 048
  2. EZETROL [Concomitant]
  3. NICOTINIC ACID [Concomitant]
  4. ALL OTHER THERAPEUTIC PRODUCTS [Concomitant]

REACTIONS (3)
  - BLOOD TRIGLYCERIDES INCREASED [None]
  - PANCREATITIS [None]
  - TRANSAMINASES INCREASED [None]
